FAERS Safety Report 15786425 (Version 1)
Quarter: 2019Q1

REPORT INFORMATION
  Report Type: Report from Study
  Country: US (occurrence: US)
  Receive Date: 20190103
  Receipt Date: 20190103
  Transmission Date: 20190417
  Serious: Yes (Hospitalization)
  Sender: FDA-Public Use
  Company Number: US-JNJFOC-20190100892

PATIENT
  Age: 68 Year
  Sex: Female

DRUGS (21)
  1. VENLAFAXINE [Concomitant]
     Active Substance: VENLAFAXINE HYDROCHLORIDE
  2. MAGNESIUM HYDROXIDE. [Concomitant]
     Active Substance: MAGNESIUM HYDROXIDE
  3. LANTUS [Concomitant]
     Active Substance: INSULIN GLARGINE
  4. RANITIDINE. [Concomitant]
     Active Substance: RANITIDINE
  5. PRAVASTATIN. [Concomitant]
     Active Substance: PRAVASTATIN
  6. IMBRUVICA [Suspect]
     Active Substance: IBRUTINIB
     Indication: CHRONIC LYMPHOCYTIC LEUKAEMIA
     Route: 048
     Dates: start: 20180405
  7. FUROSEMIDE. [Concomitant]
     Active Substance: FUROSEMIDE
  8. TRAZODONE [Concomitant]
     Active Substance: TRAZODONE HYDROCHLORIDE
  9. BUSPIRONE [Concomitant]
     Active Substance: BUSPIRONE HYDROCHLORIDE
  10. NYSTATIN. [Concomitant]
     Active Substance: NYSTATIN
  11. HUMULIN NOS [Concomitant]
     Active Substance: INSULIN HUMAN
  12. TYLENOL [Concomitant]
     Active Substance: ACETAMINOPHEN
  13. LOPERAMIDE [Concomitant]
     Active Substance: LOPERAMIDE
  14. NORCO [Concomitant]
     Active Substance: ACETAMINOPHEN\HYDROCODONE BITARTRATE
  15. VICTOZA [Concomitant]
     Active Substance: LIRAGLUTIDE
  16. AMLODIPINE [Concomitant]
     Active Substance: AMLODIPINE BESYLATE
  17. IMBRUVICA [Suspect]
     Active Substance: IBRUTINIB
     Indication: CHRONIC LYMPHOCYTIC LEUKAEMIA
     Route: 048
     Dates: start: 20171228, end: 20180404
  18. ASPIRIN. [Concomitant]
     Active Substance: ASPIRIN
  19. PREDNISOLONE. [Concomitant]
     Active Substance: PREDNISOLONE
  20. CEFALEXIN [Concomitant]
     Active Substance: CEPHALEXIN
  21. BISACODYL. [Concomitant]
     Active Substance: BISACODYL

REACTIONS (4)
  - Inappropriate schedule of product administration [Unknown]
  - Nail disorder [Unknown]
  - Off label use [Unknown]
  - Fungal skin infection [Unknown]

NARRATIVE: CASE EVENT DATE: 20171228
